FAERS Safety Report 19267955 (Version 1)
Quarter: 2021Q2

REPORT INFORMATION
  Report Type: Spontaneous
  Country: US (occurrence: US)
  Receive Date: 20210518
  Receipt Date: 20210518
  Transmission Date: 20210717
  Serious: No
  Sender: FDA-Public Use
  Company Number: US-CELLTRION INC.-2021US003390

PATIENT

DRUGS (1)
  1. TRUXIMA [Suspect]
     Active Substance: RITUXIMAB-ABBS
     Indication: IMMUNE THROMBOCYTOPENIA
     Dosage: 800 MG, DAY 1, 8, 15, 22 (THERAPY MONTH LISTED ^3/15 3/22 3/29 4/5^ WITH NO YEAR SPECIFIED)

REACTIONS (1)
  - Off label use [Unknown]
